FAERS Safety Report 12872120 (Version 1)
Quarter: 2016Q4

REPORT INFORMATION
  Report Type: Spontaneous
  Country: CA (occurrence: CA)
  Receive Date: 20161021
  Receipt Date: 20161021
  Transmission Date: 20170207
  Serious: Yes (Other)
  Sender: FDA-Public Use
  Company Number: CA-AMGEN-CANSP2016142617

PATIENT
  Age: 80 Year
  Sex: Female

DRUGS (3)
  1. PROLIA [Suspect]
     Active Substance: DENOSUMAB
     Indication: OSTEOPOROSIS
     Dosage: UNK
     Route: 065
     Dates: start: 201506
  2. VITAMIN D [Concomitant]
     Active Substance: CHOLECALCIFEROL
  3. LETROZOL [Suspect]
     Active Substance: LETROZOLE
     Indication: BREAST CANCER
     Dosage: UNK
     Route: 065
     Dates: start: 201406

REACTIONS (6)
  - Sleep disorder due to general medical condition, insomnia type [Unknown]
  - Exostosis [Unknown]
  - Constipation [Unknown]
  - Metastases to lymph nodes [Unknown]
  - Pollakiuria [Unknown]
  - Back pain [Unknown]
